FAERS Safety Report 7560238-1 (Version None)
Quarter: 2011Q2

REPORT INFORMATION
  Report Type: 
  Country: None (occurrence: None)
  Receive Date: 20110621
  Receipt Date: 20110613
  Transmission Date: 20111010
  Serious: Yes (Hospitalization, Other)
  Sender: FDA-Public Use
  Company Number: US-ALEXION-A200900951

PATIENT
  Sex: Female

DRUGS (7)
  1. FONDAPARINUX SODIUM [Concomitant]
     Indication: THROMBOSIS PROPHYLAXIS
     Dosage: 7.5 MG, QD
     Route: 058
     Dates: start: 20090401
  2. SOLIRIS [Suspect]
     Dosage: 900 MG
     Route: 042
     Dates: start: 20090520
  3. FOLIC ACID [Concomitant]
     Indication: HAEMOLYSIS
     Dosage: 1 MG, BID
     Route: 048
  4. FERROUS SULFATE TAB [Concomitant]
     Dosage: UNK
     Route: 048
  5. FONDAPARINUX SODIUM [Concomitant]
     Indication: BUDD-CHIARI SYNDROME
  6. SOLIRIS [Suspect]
     Indication: PAROXYSMAL NOCTURNAL HAEMOGLOBINURIA
     Dosage: 600 MG
     Route: 042
     Dates: start: 20090423
  7. ATENOLOL [Concomitant]
     Dosage: UNK
     Route: 048

REACTIONS (2)
  - THYROID CANCER [None]
  - DISEASE RECURRENCE [None]
